FAERS Safety Report 5410758-0 (Version None)
Quarter: 2007Q3

REPORT INFORMATION
  Report Type: 
  Country: None (occurrence: None)
  Receive Date: 20070810
  Receipt Date: 20070306
  Transmission Date: 20080115
  Serious: No
  Sender: FDA-Public Use
  Company Number: A0642099A

PATIENT
  Age: 64 Year
  Sex: Female

DRUGS (6)
  1. PAXIL CR [Suspect]
     Indication: MAJOR DEPRESSION
     Dosage: 25MG PER DAY
     Route: 048
     Dates: start: 20060101
  2. SYNTHROID [Concomitant]
  3. EVISTA [Concomitant]
  4. LIPITOR [Concomitant]
  5. ZETIA [Concomitant]
  6. AMBIEN [Concomitant]

REACTIONS (2)
  - DRUG RESISTANCE [None]
  - THINKING ABNORMAL [None]
